FAERS Safety Report 4654229-8 (Version None)
Quarter: 2005Q2

REPORT INFORMATION
  Report Type: 
  Country: None (occurrence: None)
  Receive Date: 20050504
  Receipt Date: 20050425
  Transmission Date: 20051028
  Serious: Yes (Life-Threatening)
  Sender: FDA-Public Use
  Company Number: 2005US000437

PATIENT
  Age: 41 Year
  Sex: Female

DRUGS (1)
  1. ADENOSCAN [Suspect]
     Indication: SCAN MYOCARDIAL PERFUSION
     Dosage: TOTAL DOSE, PARENTERAL
     Route: 051
     Dates: start: 20050322, end: 20050322

REACTIONS (3)
  - CARDIAC DISORDER [None]
  - CARDIO-RESPIRATORY ARREST [None]
  - POST PROCEDURAL COMPLICATION [None]
